FAERS Safety Report 23276225 (Version 2)
Quarter: 2024Q1

REPORT INFORMATION
  Report Type: Spontaneous
  Country: DE (occurrence: DE)
  Receive Date: 20231208
  Receipt Date: 20240126
  Transmission Date: 20240410
  Serious: No
  Sender: FDA-Public Use
  Company Number: DE-PFIZER INC-PV202300192189

PATIENT

DRUGS (1)
  1. MEDROXYPROGESTERONE [Suspect]
     Active Substance: MEDROXYPROGESTERONE
     Indication: Contraception

REACTIONS (3)
  - Drug dose omission by device [Unknown]
  - Device issue [Unknown]
  - Product physical consistency issue [Unknown]
